FAERS Safety Report 17816275 (Version 5)
Quarter: 2020Q3

REPORT INFORMATION
  Report Type: Spontaneous
  Country: US (occurrence: US)
  Receive Date: 20200522
  Receipt Date: 20200730
  Transmission Date: 20201102
  Serious: No
  Sender: FDA-Public Use
  Company Number: US-SA-2020SA131727

PATIENT

DRUGS (3)
  1. APIDRA SOLOSTAR [Suspect]
     Active Substance: INSULIN GLULISINE
     Dosage: 14 MORE UNITS
     Route: 065
  2. APIDRA SOLOSTAR [Suspect]
     Active Substance: INSULIN GLULISINE
     Indication: LATENT AUTOIMMUNE DIABETES IN ADULTS
     Dosage: 10 IU, QD
     Route: 065
     Dates: start: 201811
  3. APIDRA SOLOSTAR [Suspect]
     Active Substance: INSULIN GLULISINE
     Dosage: 6 MORE UNITS
     Route: 065

REACTIONS (2)
  - Intentional product use issue [Unknown]
  - Blood glucose increased [Recovering/Resolving]
